FAERS Safety Report 5650217-3 (Version None)
Quarter: 2008Q1

REPORT INFORMATION
  Report Type: 
  Country: None (occurrence: None)
  Receive Date: 20080303
  Receipt Date: 20080212
  Transmission Date: 20080703
  Serious: Yes (Death, Congenital Anomaly)
  Sender: FDA-Public Use
  Company Number: S08-SWE-00713-02

PATIENT

DRUGS (1)
  1. ESCITALOPRAM [Suspect]
     Dosage: 10 MG QD; TRANSPLACENTAL
     Route: 064
     Dates: start: 20070101, end: 20070930

REACTIONS (8)
  - ABORTION INDUCED [None]
  - CARDIAC FAILURE [None]
  - CONGENITAL HYDROCEPHALUS [None]
  - DRUG EXPOSURE DURING PREGNANCY [None]
  - FOETAL CHROMOSOME ABNORMALITY [None]
  - MULTIPLE CONGENITAL ABNORMALITIES [None]
  - RENAL FAILURE [None]
  - TRISOMY 13 [None]
